FAERS Safety Report 17923914 (Version 1)
Quarter: 2020Q2

REPORT INFORMATION
  Report Type: Spontaneous
  Country: DE (occurrence: DE)
  Receive Date: 20200622
  Receipt Date: 20200622
  Transmission Date: 20200714
  Serious: Yes (Death, Hospitalization)
  Sender: FDA-Public Use
  Company Number: DE-TEVA-2020-DE-1789091

PATIENT
  Age: 92 Year
  Sex: Male
  Weight: 85 kg

DRUGS (7)
  1. TORASEMID [Concomitant]
     Active Substance: TORSEMIDE
     Dosage: 40 MILLIGRAM DAILY;  1-1-0-0
  2. TRENANTONE 3-MONATS-DEPOT 11,25MG [Concomitant]
  3. BISOPROLOL [Suspect]
     Active Substance: BISOPROLOL
     Dosage: 2.5 MILLIGRAM DAILY; 0-0-1-0
  4. HYDROCHLOROTHIAZID/RAMIPRIL [Concomitant]
     Active Substance: HYDROCHLOROTHIAZIDE\RAMIPRIL
     Dosage: 2 DOSAGE FORMS DAILY; 12.5|2.5 MG, 1-1-0-0
  5. BISOPROLOL [Suspect]
     Active Substance: BISOPROLOL
     Dosage: 5 MILLIGRAM DAILY;  1-0-0-0
  6. IRENAT 300MG/ML [Concomitant]
     Dosage: 60 GTT DAILY; 300 MG/ML, 20-20-20-0, DROPS
  7. ELIQUIS [Concomitant]
     Active Substance: APIXABAN
     Dosage: 5 MILLIGRAM DAILY; 1-0-1-0

REACTIONS (4)
  - Arrhythmia [Unknown]
  - Troponin increased [Unknown]
  - Oedema peripheral [Unknown]
  - Asthenia [Unknown]
